FAERS Safety Report 5427054-8 (Version None)
Quarter: 2007Q3

REPORT INFORMATION
  Report Type: 
  Country: None (occurrence: None)
  Receive Date: 20070824
  Receipt Date: 20070824
  Transmission Date: 20080115
  Serious: Yes (Hospitalization)
  Sender: FDA-Public Use
  Company Number: None

PATIENT
  Age: 46 Year
  Sex: Male
  Weight: 142 kg

DRUGS (10)
  1. NAFCILLIN SODIUM [Suspect]
     Indication: STAPHYLOCOCCAL BACTERAEMIA
     Dosage: 2 G IV Q4 H
     Route: 042
     Dates: start: 20070415, end: 20070417
  2. DOCUSATE [Concomitant]
  3. RASPURICASE [Concomitant]
  4. LACTULOSE [Concomitant]
  5. SSI [Concomitant]
  6. MAALOX FAST BLOCKER [Concomitant]
  7. SENNA [Concomitant]
  8. BISACODYL [Concomitant]
  9. EPOETIN [Concomitant]
  10. LANSOPRAZOLE [Concomitant]

REACTIONS (5)
  - BLOOD CREATINE INCREASED [None]
  - HAEMATURIA [None]
  - PROTEINURIA [None]
  - URINARY CASTS [None]
  - WHITE BLOOD CELLS URINE [None]
